FAERS Safety Report 4455983-0 (Version None)
Quarter: 2004Q3

REPORT INFORMATION
  Report Type: 
  Country: None (occurrence: None)
  Receive Date: 20040922
  Receipt Date: 20040913
  Transmission Date: 20050211
  Serious: Yes (Other)
  Sender: FDA-Public Use
  Company Number: ES-GLAXOSMITHKLINE-B0345589A

PATIENT
  Age: 5 Year
  Sex: Female

DRUGS (3)
  1. SERETIDE [Suspect]
     Indication: ASTHMA
     Route: 055
     Dates: start: 20040525
  2. SINGULAIR [Suspect]
     Indication: ASTHMA
     Dosage: 5MG PER DAY
     Route: 048
     Dates: start: 20040525, end: 20040701
  3. DACORTIN [Suspect]
     Indication: ASTHMA
     Route: 048
     Dates: start: 20040519

REACTIONS (2)
  - HALLUCINATION [None]
  - SLEEP WALKING [None]
